FAERS Safety Report 5820094-6 (Version None)
Quarter: 2008Q3

REPORT INFORMATION
  Report Type: 
  Country: None (occurrence: None)
  Receive Date: 20080722
  Receipt Date: 20080722
  Transmission Date: 20090109
  Serious: Yes (Hospitalization)
  Sender: FDA-Public Use
  Company Number: None

PATIENT
  Age: 35 Year
  Sex: Female
  Weight: 63.5036 kg

DRUGS (1)
  1. IVIG TREATMENT [Suspect]
     Indication: MYASTHENIA GRAVIS
     Dates: start: 20080708, end: 20080710

REACTIONS (7)
  - DIZZINESS [None]
  - HEADACHE [None]
  - MENINGITIS ASEPTIC [None]
  - MUSCULOSKELETAL STIFFNESS [None]
  - NECK PAIN [None]
  - TREMOR [None]
  - VOMITING [None]
